FAERS Safety Report 5520496-1 (Version None)
Quarter: 2007Q4

REPORT INFORMATION
  Report Type: 
  Country: None (occurrence: None)
  Receive Date: 20071119
  Receipt Date: 20070512
  Transmission Date: 20080405
  Serious: Yes (Death, Other)
  Sender: FDA-Public Use
  Company Number: DE-PFIZER INC-2007039414

PATIENT
  Sex: Female

DRUGS (5)
  1. NEURONTIN [Suspect]
     Indication: FACIAL NEURALGIA
     Route: 048
  2. NEURONTIN [Suspect]
     Indication: FACIAL PAIN
  3. KATADOLON [Concomitant]
  4. AMITRIPTYLINE [Concomitant]
  5. DIAZEPAM [Concomitant]

REACTIONS (4)
  - DEATH [None]
  - DYSPNOEA [None]
  - RESPIRATORY TRACT INFECTION [None]
  - SUICIDE ATTEMPT [None]
